FAERS Safety Report 8076449-5 (Version None)
Quarter: 2012Q1

REPORT INFORMATION
  Report Type: 
  Country: None (occurrence: None)
  Receive Date: 20120127
  Receipt Date: 20120117
  Transmission Date: 20120608
  Serious: Yes (Other)
  Sender: FDA-Public Use
  Company Number: SK-TEVA-313864ISR

PATIENT
  Age: 72 Year
  Sex: Male
  Weight: 62 kg

DRUGS (8)
  1. AZILECT [Suspect]
     Dosage: 1 MILLIGRAM;
     Route: 048
  2. OLICARD [Concomitant]
     Dosage: 40 MILLIGRAM;
     Route: 048
  3. ANOPYRIN [Concomitant]
     Dosage: 100 MILLIGRAM;
     Route: 048
  4. STALEVO 100 [Concomitant]
     Dosage: 500 MILLIGRAM;
     Route: 048
  5. CORVATON [Concomitant]
     Dosage: 4 MILLIGRAM;
     Route: 048
  6. DIACORDIN [Concomitant]
     Dosage: 120 MILLIGRAM;
     Route: 048
  7. OSTEOGENON [Concomitant]
     Dosage: 800 MILLIGRAM;
     Route: 048
  8. TAMUROX [Concomitant]
     Dosage: .4 MILLIGRAM;
     Route: 048

REACTIONS (3)
  - COGNITIVE DISORDER [None]
  - HALLUCINATION [None]
  - APRAXIA [None]
